FAERS Safety Report 21211457 (Version 2)
Quarter: 2022Q3

REPORT INFORMATION
  Report Type: Report from Study
  Country: US (occurrence: None)
  Receive Date: 20220815
  Receipt Date: 20220819
  Transmission Date: 20221026
  Serious: Yes (Hospitalization)
  Sender: FDA-Public Use
  Company Number: US-ROCHE-3157058

PATIENT
  Age: 40 Year
  Sex: Female

DRUGS (6)
  1. ATEZOLIZUMAB [Suspect]
     Active Substance: ATEZOLIZUMAB
     Indication: HER2 negative breast cancer
     Dosage: ON 23/MAY/2022, RECEIVED MOST RECENT DOSE 840 MG OF ATEZOLIZUMAB (IV) PRIOR TO ADVERSE EVENT (AE)
     Route: 041
     Dates: start: 20220426
  2. ABEMACICLIB [Suspect]
     Active Substance: ABEMACICLIB
     Indication: HER2 negative breast cancer
     Dosage: ON 06/JUN/2022, RECEIVED MOST RECENT DOSE 100 OF ORAL ABEMACICLIB PRIOR TO ADVERSE EVENT (AE)?END DA
     Route: 048
     Dates: start: 20220426
  3. FULVESTRANT [Suspect]
     Active Substance: FULVESTRANT
     Indication: HER2 negative breast cancer
     Dosage: ON 28/JUL/2022, RECEIVED MOST RECENT DOSE 500 MG OF FULVESTRANT PRIOR TO ADVERSE EVENT (AE)
     Route: 030
     Dates: start: 20220426
  4. LOPERAMIDE [Concomitant]
     Active Substance: LOPERAMIDE
     Indication: Diarrhoea
     Route: 048
     Dates: start: 20220427
  5. ATROPINE\DIPHENOXYLATE [Concomitant]
     Active Substance: ATROPINE\DIPHENOXYLATE
     Indication: Diarrhoea
     Route: 065
     Dates: start: 20220607
  6. ONDANSETRON [Concomitant]
     Active Substance: ONDANSETRON
     Indication: Nausea
     Route: 065
     Dates: start: 20220606

REACTIONS (1)
  - Flank pain [Not Recovered/Not Resolved]

NARRATIVE: CASE EVENT DATE: 20220803
